FAERS Safety Report 5621741-4 (Version None)
Quarter: 2008Q1

REPORT INFORMATION
  Report Type: 
  Country: None (occurrence: None)
  Receive Date: 20080211
  Receipt Date: 20080131
  Transmission Date: 20080703
  Serious: Yes (Hospitalization, Other)
  Sender: FDA-Public Use
  Company Number: PHBS2008NO01611

PATIENT
  Age: 38 Year
  Sex: Male

DRUGS (3)
  1. VOLTAREN [Suspect]
     Indication: ABDOMINAL PAIN UPPER
     Dosage: 50 MG UNDILUTED INTRAVENOUSLY TID
     Route: 042
  2. VOLTAREN [Suspect]
     Dosage: 50 MG, TID
     Route: 048
  3. PETIDIN [Concomitant]
     Indication: PAIN
     Route: 042

REACTIONS (19)
  - ANGINA PECTORIS [None]
  - BLOOD PRESSURE INCREASED [None]
  - CHEST PAIN [None]
  - CORONARY ARTERY DISEASE [None]
  - DIZZINESS [None]
  - DRUG DISPENSING ERROR [None]
  - EXERCISE ELECTROCARDIOGRAM NORMAL [None]
  - HEART RATE INCREASED [None]
  - HEMIPARESIS [None]
  - INFLUENZA [None]
  - INJECTION SITE PAIN [None]
  - MUSCULAR WEAKNESS [None]
  - MUSCULOSKELETAL CHEST PAIN [None]
  - MYOCARDIAL INFARCTION [None]
  - OEDEMA PERIPHERAL [None]
  - PAIN [None]
  - PARAESTHESIA [None]
  - STENT PLACEMENT [None]
  - VEIN DISORDER [None]
